FAERS Safety Report 25780717 (Version 1)
Quarter: 2025Q3

REPORT INFORMATION
  Report Type: Spontaneous
  Country: EU (occurrence: EU)
  Receive Date: 20250909
  Receipt Date: 20250909
  Transmission Date: 20251020
  Serious: Yes (Hospitalization, Other)
  Sender: PFIZER
  Company Number: EU-ROCHE-1301364

PATIENT
  Age: 67 Year
  Sex: Female
  Weight: 77 kg

DRUGS (13)
  1. EPIRUBICIN HYDROCHLORIDE [Suspect]
     Active Substance: EPIRUBICIN HYDROCHLORIDE
     Indication: HER2 positive breast cancer
     Route: 065
     Dates: start: 20130528
  2. PACLITAXEL [Suspect]
     Active Substance: PACLITAXEL
     Indication: HER2 positive breast cancer
     Dosage: 135.2 MG, EVERY 3 WEEKS
     Route: 042
     Dates: start: 20130827
  3. PACLITAXEL [Suspect]
     Active Substance: PACLITAXEL
     Dosage: 136 MG, EVERY 3 WEEKS (LAST DOSE PRIOR TO SERIOUS ADVERSE EVENT)
     Route: 042
     Dates: start: 20131015
  4. TRASTUZUMAB [Suspect]
     Active Substance: TRASTUZUMAB
     Indication: HER2 positive breast cancer
     Dosage: 608 MG, EVERY 3 WEEKS (FREQUENCY: LOADING DOSE IN CYCLE 1)
     Route: 042
     Dates: start: 20130820
  5. TRASTUZUMAB [Suspect]
     Active Substance: TRASTUZUMAB
     Dosage: 468 MG, EVERY 3 WEEKS, (LAST DOSE PRIOR TO SERIOUS ADVERSE EVENT)
     Route: 042
     Dates: start: 20131001
  6. PERTUZUMAB [Suspect]
     Active Substance: PERTUZUMAB
     Indication: HER2 positive breast cancer
     Dosage: 840 MG, EVERY 3 WEEKS (DAY 1 CYCLE, LOADING DOSE, INFUSION)
     Route: 042
     Dates: start: 20130820
  7. PERTUZUMAB [Suspect]
     Active Substance: PERTUZUMAB
     Dosage: 420 MG, EVERY 3 WEEKS (LAST DOSE PRIOR TO SERIOUS ADVERSE EVENT)
     Route: 042
     Dates: start: 20131001
  8. CYCLOPHOSPHAMIDE [Suspect]
     Active Substance: CYCLOPHOSPHAMIDE
     Indication: HER2 positive breast cancer
     Route: 065
     Dates: start: 20130528
  9. FLUOROURACIL [Suspect]
     Active Substance: FLUOROURACIL
     Indication: HER2 positive breast cancer
     Route: 065
     Dates: start: 20130528
  10. VALPROATE SODIUM [Concomitant]
     Active Substance: VALPROATE SODIUM
     Dates: start: 20071001
  11. PRAVASTATIN [Concomitant]
     Active Substance: PRAVASTATIN
     Dates: start: 20110121
  12. LUMINALETAS [Concomitant]
     Dates: start: 20111005
  13. LERCANIDIPINO [LERCANIDIPINE] [Concomitant]
     Dates: start: 20111005

REACTIONS (1)
  - Cardiac failure [Not Recovered/Not Resolved]

NARRATIVE: CASE EVENT DATE: 20131021
